FAERS Safety Report 13236982 (Version 3)
Quarter: 2017Q3

REPORT INFORMATION
  Report Type: Spontaneous
  Country: US (occurrence: US)
  Receive Date: 20170215
  Receipt Date: 20170717
  Transmission Date: 20171127
  Serious: No
  Sender: FDA-Public Use
  Company Number: US-ELI_LILLY_AND_COMPANY-US201607006130

PATIENT
  Sex: Female

DRUGS (3)
  1. OXYCODONE [Concomitant]
     Active Substance: OXYCODONE
     Indication: PRODUCT USED FOR UNKNOWN INDICATION
     Dosage: UNK, UNKNOWN
     Route: 065
  2. CYMBALTA [Suspect]
     Active Substance: DULOXETINE HYDROCHLORIDE
     Indication: NEUROPATHY PERIPHERAL
     Dosage: 120 MG, DAILY
     Route: 065
     Dates: start: 2003, end: 20151015
  3. XANAX [Concomitant]
     Active Substance: ALPRAZOLAM
     Indication: PRODUCT USED FOR UNKNOWN INDICATION
     Dosage: UNK, UNKNOWN
     Route: 065

REACTIONS (40)
  - Chills [Unknown]
  - Cough [Unknown]
  - Speech disorder [Unknown]
  - Micturition urgency [Unknown]
  - Hypoaesthesia [Unknown]
  - Influenza like illness [Unknown]
  - Urinary retention [Unknown]
  - Tooth disorder [Unknown]
  - Asthenia [Unknown]
  - Menometrorrhagia [Unknown]
  - Anaemia [Unknown]
  - Candida infection [Unknown]
  - Confusional state [Unknown]
  - Heart rate increased [Unknown]
  - Tinnitus [Unknown]
  - Anger [Unknown]
  - Abdominal pain upper [Unknown]
  - Bladder dysfunction [Unknown]
  - Oropharyngeal pain [Unknown]
  - Hyperhidrosis [Unknown]
  - Blood test abnormal [Unknown]
  - Sleep disorder [Unknown]
  - Muscle spasms [Unknown]
  - Pruritus [Unknown]
  - Feeling abnormal [Unknown]
  - Panic attack [Unknown]
  - Agitation [Unknown]
  - Epistaxis [Unknown]
  - Drug withdrawal syndrome [Not Recovered/Not Resolved]
  - Intentional product use issue [Unknown]
  - Fluid retention [Unknown]
  - Feeding disorder [Unknown]
  - Alopecia [Unknown]
  - White blood cell count abnormal [Unknown]
  - Vomiting [Unknown]
  - Off label use [Unknown]
  - Migraine [Unknown]
  - Trismus [Unknown]
  - Paraesthesia [Unknown]
  - Dizziness [Unknown]
